FAERS Safety Report 8947680 (Version 4)
Quarter: 2018Q4

REPORT INFORMATION
  Report Type: Report from Study
  Country: US (occurrence: US)
  Receive Date: 20121205
  Receipt Date: 20181218
  Transmission Date: 20190205
  Serious: Yes (Other)
  Sender: FDA-Public Use
  Company Number: US-ROCHE-1163103

PATIENT

DRUGS (5)
  1. PEGFILGRASTIM [Concomitant]
     Active Substance: PEGFILGRASTIM
     Dosage: 6 MG DAY 6
     Route: 065
  2. CLADRIBINE. [Suspect]
     Active Substance: CLADRIBINE
     Indication: MANTLE CELL LYMPHOMA
     Dosage: 1-5 OF A 28 DAY CYCLE
     Route: 042
  3. TEMSIROLIMUS. [Suspect]
     Active Substance: TEMSIROLIMUS
     Indication: MANTLE CELL LYMPHOMA
     Route: 042
  4. RITUXIMAB. [Suspect]
     Active Substance: RITUXIMAB
     Indication: MANTLE CELL LYMPHOMA
     Dosage: ON DAY 1 OF A 28 DAY CYCLE
     Route: 042
  5. FILGRASTIM [Concomitant]
     Active Substance: FILGRASTIM
     Dosage: 300-480 UM DAYS 6-15
     Route: 065

REACTIONS (18)
  - Platelet count decreased [Unknown]
  - Lymphocyte count decreased [Unknown]
  - Thrombosis [Unknown]
  - Neutrophil count decreased [Unknown]
  - Cytokine release syndrome [Unknown]
  - Haemoglobin decreased [Unknown]
  - Febrile neutropenia [Unknown]
  - Nausea [Unknown]
  - Vomiting [Unknown]
  - Prostate cancer [Unknown]
  - Myelodysplastic syndrome [Unknown]
  - Pneumonitis [Unknown]
  - Pneumonia [Unknown]
  - Fatigue [Unknown]
  - White blood cell count decreased [Unknown]
  - Blood glucose increased [Unknown]
  - Epistaxis [Unknown]
  - Basal cell carcinoma [Unknown]
